FAERS Safety Report 21437680 (Version 3)
Quarter: 2022Q4

REPORT INFORMATION
  Report Type: Spontaneous
  Country: US (occurrence: US)
  Receive Date: 20221011
  Receipt Date: 20221229
  Transmission Date: 20230113
  Serious: No
  Sender: FDA-Public Use
  Company Number: US-GSK-US2022141951

PATIENT
  Sex: Female

DRUGS (4)
  1. ZEJULA [Suspect]
     Active Substance: NIRAPARIB
     Indication: Ovarian cancer
     Dosage: 200 MG, QD
     Dates: start: 20220701, end: 20220815
  2. ZEJULA [Suspect]
     Active Substance: NIRAPARIB
     Dosage: 200 MG, QD
     Dates: start: 20220823
  3. ZEJULA [Suspect]
     Active Substance: NIRAPARIB
     Dosage: 200 MG, QD
     Dates: start: 20220823
  4. ZEJULA [Suspect]
     Active Substance: NIRAPARIB
     Dosage: 200 MG, QD

REACTIONS (12)
  - Fall [Unknown]
  - Full blood count abnormal [Unknown]
  - Arthralgia [Unknown]
  - Head injury [Unknown]
  - Platelet count decreased [Recovered/Resolved]
  - Blood potassium decreased [Unknown]
  - Back pain [Unknown]
  - Myalgia [Unknown]
  - Back disorder [Unknown]
  - Pain [Unknown]
  - Blood pressure increased [Unknown]
  - Product dose omission issue [Unknown]
